FAERS Safety Report 16359717 (Version 1)
Quarter: 2019Q2

REPORT INFORMATION
  Report Type: Spontaneous
  Country: CH (occurrence: CH)
  Receive Date: 20190528
  Receipt Date: 20190528
  Transmission Date: 20190711
  Serious: Yes (Other)
  Sender: FDA-Public Use
  Company Number: CH-TEVA-2019-CH-1055229

PATIENT
  Age: 64 Year
  Sex: Female

DRUGS (2)
  1. RITUXIMAB. [Suspect]
     Active Substance: RITUXIMAB
     Indication: PRODUCT USED FOR UNKNOWN INDICATION
     Dosage: 375 MG/M2, (EVERY FOUR WEEKS, WITH SIX CYCLES)
     Route: 065
  2. BENDAMUSTINE HYDROCHLORIDE. [Suspect]
     Active Substance: BENDAMUSTINE HYDROCHLORIDE
     Indication: PRODUCT USED FOR UNKNOWN INDICATION
     Dosage: 90 MG/M2, (EVERY FOUR WEEKS, WITH SIX CYCLES)
     Route: 042

REACTIONS (4)
  - Folliculitis [Recovering/Resolving]
  - Prescribed underdose [Unknown]
  - Skin hyperpigmentation [Recovering/Resolving]
  - Skin ulcer [Recovering/Resolving]
